FAERS Safety Report 17884817 (Version 1)
Quarter: 2020Q2

REPORT INFORMATION
  Report Type: Spontaneous
  Country: US (occurrence: US)
  Receive Date: 20200611
  Receipt Date: 20200611
  Transmission Date: 20200714
  Serious: No
  Sender: FDA-Public Use
  Company Number: US-AKRON, INC.-2085652

PATIENT
  Sex: Male

DRUGS (1)
  1. FENTANYL CITRATE INJECTION [Suspect]
     Active Substance: FENTANYL CITRATE

REACTIONS (1)
  - Therapeutic product effect decreased [Unknown]
